FAERS Safety Report 12351538 (Version 2)
Quarter: 2016Q2

REPORT INFORMATION
  Report Type: Report from Study
  Country: AR (occurrence: AR)
  Receive Date: 20160510
  Receipt Date: 20160524
  Transmission Date: 20160815
  Serious: Yes (Other)
  Sender: FDA-Public Use
  Company Number: PHHY2016AR062417

PATIENT
  Sex: Female

DRUGS (3)
  1. ULTIBRO BREEZHALER [Suspect]
     Active Substance: GLYCOPYRRONIUM\INDACATEROL
     Indication: CHRONIC OBSTRUCTIVE PULMONARY DISEASE
     Dosage: UNK UNK, QD
     Route: 065
  2. SEEBRI BREEZHALER [Suspect]
     Active Substance: GLYCOPYRROLATE
     Indication: CHRONIC OBSTRUCTIVE PULMONARY DISEASE
     Dosage: UNK UNK, QD
     Route: 065
  3. ONBREZ BREEZHALER [Suspect]
     Active Substance: INDACATEROL
     Indication: CHRONIC OBSTRUCTIVE PULMONARY DISEASE
     Dosage: UNK UNK, QD
     Route: 065

REACTIONS (8)
  - Swelling [Recovering/Resolving]
  - Visual impairment [Recovering/Resolving]
  - Fall [Recovering/Resolving]
  - Pyrexia [Unknown]
  - Anger [Recovering/Resolving]
  - Upper limb fracture [Recovering/Resolving]
  - Anxiety [Recovering/Resolving]
  - Malaise [Recovering/Resolving]
